FAERS Safety Report 5728686-X (Version None)
Quarter: 2008Q2

REPORT INFORMATION
  Report Type: 
  Country: None (occurrence: None)
  Receive Date: 20080430
  Receipt Date: 20080113
  Transmission Date: 20081010
  Serious: No
  Sender: FDA-Public Use
  Company Number: 2008PV033941

PATIENT
  Age: 55 Year
  Sex: Female

DRUGS (5)
  1. SYMLIN [Suspect]
     Indication: TYPE 1 DIABETES MELLITUS
     Dosage: 48 MCG;TID;SC, 36 MCG;TID;SC, 18 MCG;TID;SC
     Route: 058
     Dates: start: 20071224, end: 20071231
  2. SYMLIN [Suspect]
     Indication: TYPE 1 DIABETES MELLITUS
     Dosage: 48 MCG;TID;SC, 36 MCG;TID;SC, 18 MCG;TID;SC
     Route: 058
     Dates: start: 20080101, end: 20080110
  3. SYMLIN [Suspect]
     Indication: TYPE 1 DIABETES MELLITUS
     Dosage: 48 MCG;TID;SC, 36 MCG;TID;SC, 18 MCG;TID;SC
     Route: 058
     Dates: start: 20080111
  4. NOVOLOG [Concomitant]
  5. LANTUS [Concomitant]

REACTIONS (2)
  - BLOOD GLUCOSE FLUCTUATION [None]
  - NAUSEA [None]
